FAERS Safety Report 6977865-2 (Version None)
Quarter: 2010Q3

REPORT INFORMATION
  Report Type: 
  Country: None (occurrence: None)
  Receive Date: 20100913
  Receipt Date: 20100902
  Transmission Date: 20110219
  Serious: No
  Sender: FDA-Public Use
  Company Number: US-BIOGENIDEC-2010BI030533

PATIENT
  Age: 42 Year
  Sex: Female

DRUGS (4)
  1. AVONEX [Suspect]
     Indication: MULTIPLE SCLEROSIS
     Route: 030
     Dates: start: 20040101, end: 20040101
  2. AVONEX [Suspect]
     Route: 030
     Dates: start: 20040101, end: 20040101
  3. AVONEX [Suspect]
     Route: 030
     Dates: start: 20100801
  4. BLOOD PRESSURE MEDICINE (NOS) [Concomitant]
     Indication: HYPERTENSION
     Route: 048

REACTIONS (2)
  - JOINT SWELLING [None]
  - OEDEMA PERIPHERAL [None]
